FAERS Safety Report 21669455 (Version 1)
Quarter: 2022Q4

REPORT INFORMATION
  Report Type: Report from Study
  Country: US (occurrence: US)
  Receive Date: 20221201
  Receipt Date: 20221201
  Transmission Date: 20230113
  Serious: Yes (Other)
  Sender: FDA-Public Use
  Company Number: US-BAYER-2022P023388

PATIENT
  Age: 71 Year
  Sex: Male
  Weight: 90.703 kg

DRUGS (1)
  1. ADEMPAS [Suspect]
     Active Substance: RIOCIGUAT
     Indication: Pulmonary arterial hypertension
     Dosage: 0.5 MG, TID
     Route: 048

REACTIONS (7)
  - Loss of consciousness [None]
  - Blood pressure diastolic decreased [None]
  - Hypotension [None]
  - Dizziness [Not Recovered/Not Resolved]
  - Limb injury [None]
  - Dyspnoea exertional [None]
  - Asthenia [None]

NARRATIVE: CASE EVENT DATE: 20221118
